FAERS Safety Report 6406026-0 (Version None)
Quarter: 2009Q4

REPORT INFORMATION
  Report Type: 
  Country: None (occurrence: None)
  Receive Date: 20091016
  Receipt Date: 20091016
  Transmission Date: 20100525
  Serious: Yes (Hospitalization)
  Sender: FDA-Public Use
  Company Number: None

PATIENT
  Sex: Female
  Weight: 52.7 kg

DRUGS (2)
  1. CISPLATIN [Suspect]
     Dosage: 114 MG
  2. ETOPOSIDE [Suspect]
     Dosage: 420 MG

REACTIONS (3)
  - BODY TEMPERATURE INCREASED [None]
  - PANCYTOPENIA [None]
  - PULMONARY EMBOLISM [None]
